FAERS Safety Report 16544716 (Version 2)
Quarter: 2019Q3

REPORT INFORMATION
  Report Type: Report from Study
  Country: US (occurrence: US)
  Receive Date: 20190709
  Receipt Date: 20190724
  Transmission Date: 20191004
  Serious: Yes (Hospitalization)
  Sender: FDA-Public Use
  Company Number: US-BAXTER-2019BAX013313

PATIENT
  Age: 36 Year
  Sex: Male
  Weight: 151 kg

DRUGS (13)
  1. INOTUZUMAB OZOGAMICIN [Suspect]
     Active Substance: INOTUZUMAB OZOGAMICIN
     Dosage: 1 TO 4TH COURSE, DAY 8 AND 15
     Route: 042
  2. PREDNISONE. [Suspect]
     Active Substance: PREDNISONE
     Dosage: TOTAL DOSE ADMINISTERED THIS COURSE: 500 MG, 5TH COURSE.
     Route: 048
     Dates: start: 20190430, end: 20190504
  3. CYCLOPHOSPHAMIDE FOR INJECTION, USP [Suspect]
     Active Substance: CYCLOPHOSPHAMIDE
     Indication: PRODUCT USED FOR UNKNOWN INDICATION
     Dosage: 750 MG/M2 CYCLIC DAY 1 EVERY CYCLE, 1 TO 4 COURSE
     Route: 042
     Dates: start: 20181212
  4. VINCRISTINE SULFATE. [Suspect]
     Active Substance: VINCRISTINE SULFATE
     Indication: ACUTE LYMPHOCYTIC LEUKAEMIA
     Dosage: 1.4 MG/M2 (MAX 2 MG) CYCLIC 1 EVERY CYCLE, 1 TO 4TH COURSE
     Route: 042
     Dates: start: 20181212
  5. CYCLOPHOSPHAMIDE FOR INJECTION, USP [Suspect]
     Active Substance: CYCLOPHOSPHAMIDE
     Indication: ACUTE LYMPHOCYTIC LEUKAEMIA
     Dosage: R-HYPERCVAD THERAPY
     Route: 042
     Dates: start: 201711, end: 201804
  6. MESNEX [Suspect]
     Active Substance: MESNA
     Indication: PRODUCT USED FOR UNKNOWN INDICATION
     Dosage: R-HYPERCVAD  THERAPY
     Route: 065
     Dates: start: 201711, end: 201804
  7. CYCLOPHOSPHAMIDE FOR INJECTION, USP [Suspect]
     Active Substance: CYCLOPHOSPHAMIDE
     Dosage: TOTAL DOSE ADMINISTERED THIS COURSE: 1283 MG, 5TH COURSE
     Route: 042
     Dates: start: 20190430, end: 20190430
  8. INOTUZUMAB OZOGAMICIN [Suspect]
     Active Substance: INOTUZUMAB OZOGAMICIN
     Dosage: TOTAL DOSE ADMINISTERED THIS COURSE: 3.09 MG, 5TH COURSE DAY 15
     Route: 042
     Dates: start: 20190514, end: 20190514
  9. INOTUZUMAB OZOGAMICIN [Suspect]
     Active Substance: INOTUZUMAB OZOGAMICIN
     Indication: ACUTE LYMPHOCYTIC LEUKAEMIA
     Dosage: DAY 1, 1 TO 4TH COURSE
     Route: 042
     Dates: start: 20181212
  10. INOTUZUMAB OZOGAMICIN [Suspect]
     Active Substance: INOTUZUMAB OZOGAMICIN
     Dosage: DAY 8, 5TH COURSE
     Route: 042
     Dates: start: 201905
  11. INOTUZUMAB OZOGAMICIN [Suspect]
     Active Substance: INOTUZUMAB OZOGAMICIN
     Dosage: DAY 1, 5TH COURSE.
     Route: 042
     Dates: start: 20190430, end: 20190430
  12. VINCRISTINE SULFATE. [Suspect]
     Active Substance: VINCRISTINE SULFATE
     Dosage: TOTAL DOSE ADMINISTERED THIS COURSE: 2 MG, 5TH COURSE
     Route: 042
     Dates: start: 20190430, end: 20190430
  13. PREDNISONE. [Suspect]
     Active Substance: PREDNISONE
     Indication: ACUTE LYMPHOCYTIC LEUKAEMIA
     Dosage: DAY 1 TO 5, 1 TO 4TH COURSE
     Route: 048
     Dates: start: 20181212

REACTIONS (4)
  - Deep vein thrombosis [Unknown]
  - Pyelonephritis [Recovering/Resolving]
  - Haematoma [Unknown]
  - Pyrexia [Recovered/Resolved]

NARRATIVE: CASE EVENT DATE: 20190521
